FAERS Safety Report 7604621-4 (Version None)
Quarter: 2011Q3

REPORT INFORMATION
  Report Type: 
  Country: None (occurrence: None)
  Receive Date: 20110712
  Receipt Date: 20110707
  Transmission Date: 20111222
  Serious: Yes (Hospitalization, Other)
  Sender: FDA-Public Use
  Company Number: US-ABBOTT-11P-163-0837234-00

PATIENT
  Sex: Male

DRUGS (19)
  1. HUMIRA [Suspect]
     Indication: RHEUMATOID ARTHRITIS
  2. PROTONIX [Concomitant]
     Indication: GASTROOESOPHAGEAL REFLUX DISEASE
  3. PERCOCET [Concomitant]
     Indication: PRODUCT USED FOR UNKNOWN INDICATION
  4. HUMIRA [Suspect]
     Dates: start: 20110201, end: 20110601
  5. FUROSEMIDE [Concomitant]
     Indication: PRODUCT USED FOR UNKNOWN INDICATION
  6. LISINOPRIL [Concomitant]
     Indication: HYPERTENSION
  7. HUMIRA [Suspect]
     Dates: end: 20110101
  8. METOPROLOL TARTRATE [Concomitant]
     Indication: HYPERTENSION
  9. CRESTOR [Concomitant]
     Indication: PRODUCT USED FOR UNKNOWN INDICATION
  10. HUMIRA [Suspect]
     Dates: start: 20110601
  11. BACLOFEN [Concomitant]
     Indication: CEREBROVASCULAR ACCIDENT
  12. AVINZA [Concomitant]
     Indication: BACK PAIN
  13. LIDOCAINE [Concomitant]
     Indication: PRODUCT USED FOR UNKNOWN INDICATION
     Dosage: ON BACK DAILY
  14. METHOTREXATE [Concomitant]
     Indication: PRODUCT USED FOR UNKNOWN INDICATION
  15. PREDNISONE [Suspect]
     Indication: PRODUCT USED FOR UNKNOWN INDICATION
  16. PLAVIX [Concomitant]
     Indication: BLOOD CHOLESTEROL INCREASED
  17. BACLOFEN [Concomitant]
     Indication: PHARYNGEAL DISORDER
  18. ADVAIR DISKUS 100/50 [Concomitant]
     Indication: PRODUCT USED FOR UNKNOWN INDICATION
  19. FEXOFENADINE HCL [Concomitant]
     Indication: HYPERSENSITIVITY

REACTIONS (13)
  - DIABETES MELLITUS [None]
  - LIPOMA [None]
  - MOBILITY DECREASED [None]
  - RHEUMATOID ARTHRITIS [None]
  - PNEUMONIA [None]
  - SURGERY [None]
  - HAEMOPTYSIS [None]
  - DRUG INEFFECTIVE [None]
  - SKIN HAEMORRHAGE [None]
  - PRODUCTIVE COUGH [None]
  - RESPIRATORY FAILURE [None]
  - APPARENT DEATH [None]
  - LENTIGO [None]
